FAERS Safety Report 15663964 (Version 2)
Quarter: 2018Q4

REPORT INFORMATION
  Report Type: Report from Study
  Country: JP (occurrence: JP)
  Receive Date: 20181128
  Receipt Date: 20181221
  Transmission Date: 20190205
  Serious: Yes (Other)
  Sender: FDA-Public Use
  Company Number: JP-B.I. PHARMACEUTICALS,INC./RIDGEFIELD-2018-NB-006118

PATIENT
  Age: 70 Year
  Sex: Male

DRUGS (1)
  1. BIBF 1120 [Suspect]
     Active Substance: NINTEDANIB
     Indication: IDIOPATHIC PULMONARY FIBROSIS
     Route: 048
     Dates: start: 201709

REACTIONS (4)
  - Antineutrophil cytoplasmic antibody positive [Unknown]
  - Computerised tomogram abnormal [Unknown]
  - Interstitial lung disease [Unknown]
  - Haemoptysis [Unknown]

NARRATIVE: CASE EVENT DATE: 201804
